APPROVED DRUG PRODUCT: IOFLUPANE I-123
Active Ingredient: IOFLUPANE I-123
Strength: 5mCi/2.5ML (2mCi/ML)
Dosage Form/Route: SOLUTION;INTRAVENOUS
Application: A213792 | Product #001 | TE Code: AP
Applicant: CURIUM US LLC
Approved: Mar 30, 2022 | RLD: No | RS: No | Type: RX